FAERS Safety Report 5695378-5 (Version None)
Quarter: 2008Q1

REPORT INFORMATION
  Report Type: 
  Country: None (occurrence: None)
  Receive Date: 20080328
  Receipt Date: 20080317
  Transmission Date: 20080703
  Serious: Yes (Death, Hospitalization)
  Sender: FDA-Public Use
  Company Number: THYM-11169

PATIENT
  Age: 59 Year
  Sex: Female
  Weight: 42 kg

DRUGS (11)
  1. THYMOGLOBULIN [Suspect]
     Indication: LIVER TRANSPLANT
     Dosage: 105 MG,QD, INTRAVENOUS; 50 MG, QD, INTRAVENOUS;
     Route: 042
     Dates: start: 20061027, end: 20061027
  2. THYMOGLOBULIN [Suspect]
     Indication: LIVER TRANSPLANT
     Dosage: 105 MG,QD, INTRAVENOUS; 50 MG, QD, INTRAVENOUS;
     Route: 042
     Dates: start: 20061028, end: 20061028
  3. THYMOGLOBULIN [Suspect]
     Indication: LIVER TRANSPLANT
     Dosage: 105 MG,QD, INTRAVENOUS; 50 MG, QD, INTRAVENOUS;
     Route: 042
     Dates: start: 20061029, end: 20061029
  4. THYMOGLOBULIN [Suspect]
     Indication: LIVER TRANSPLANT
     Dosage: 105 MG,QD, INTRAVENOUS; 50 MG, QD, INTRAVENOUS;
     Route: 042
     Dates: start: 20061031, end: 20061102
  5. TACROLIMUS [Concomitant]
  6. MYCOPHENOLATE MOFETIL [Concomitant]
  7. GANCICLOVIR [Concomitant]
  8. BACTRIM DS [Concomitant]
  9. FLUCONAZOLE [Concomitant]
  10. PREDNISONE TAB [Concomitant]
  11. SOLU-MEDROL [Concomitant]

REACTIONS (24)
  - ANAEMIA [None]
  - ANASTOMOTIC STENOSIS [None]
  - CARDIAC ARREST [None]
  - CITROBACTER SEPSIS [None]
  - DYSPNOEA [None]
  - ENTEROBACTER SEPSIS [None]
  - FAT NECROSIS [None]
  - HAEMANGIOMA OF LIVER [None]
  - HEART RATE INCREASED [None]
  - HEPATIC ISCHAEMIA [None]
  - HEPATIC NECROSIS [None]
  - HYPOTENSION [None]
  - INTRA-ABDOMINAL HAEMORRHAGE [None]
  - LIVER ABSCESS [None]
  - LIVER FUNCTION TEST ABNORMAL [None]
  - LIVER TRANSPLANT REJECTION [None]
  - PANCREATIC NECROSIS [None]
  - PERIHEPATIC ABSCESS [None]
  - POST PROCEDURAL BILE LEAK [None]
  - REPERFUSION INJURY [None]
  - SEPSIS [None]
  - SEROSITIS [None]
  - TACHYCARDIA [None]
  - TACHYPNOEA [None]
